FAERS Safety Report 5986444-5 (Version None)
Quarter: 2008Q4

REPORT INFORMATION
  Report Type: 
  Country: None (occurrence: None)
  Receive Date: 20081209
  Receipt Date: 20081201
  Transmission Date: 20090506
  Serious: Yes (Other)
  Sender: FDA-Public Use
  Company Number: US-BAYER-200834857NA

PATIENT
  Age: 24 Year
  Sex: Female
  Weight: 79 kg

DRUGS (2)
  1. MIRENA [Suspect]
     Indication: CONTRACEPTION
     Route: 015
  2. CYTOTEC [Concomitant]
     Indication: ANALGESIA
     Dosage: TOTAL DAILY DOSE: 200 ?G
     Route: 067
     Dates: start: 20080924, end: 20080924

REACTIONS (1)
  - UTERINE RUPTURE [None]
